FAERS Safety Report 5563800-0 (Version None)
Quarter: 2007Q4

REPORT INFORMATION
  Report Type: 
  Country: None (occurrence: None)
  Receive Date: 20071217
  Receipt Date: 20070910
  Transmission Date: 20080405
  Serious: No
  Sender: FDA-Public Use
  Company Number: US-ASTRAZENECA-2007UW21267

PATIENT
  Age: 74 Year
  Sex: Male
  Weight: 78.9 kg

DRUGS (4)
  1. CRESTOR [Suspect]
     Indication: BLOOD CHOLESTEROL INCREASED
     Route: 048
  2. ASPIRIN [Concomitant]
  3. VITAMINS [Concomitant]
  4. TRIPLEX [Concomitant]

REACTIONS (3)
  - HEADACHE [None]
  - PYREXIA [None]
  - URINE COLOUR ABNORMAL [None]
